FAERS Safety Report 17468001 (Version 1)
Quarter: 2020Q1

REPORT INFORMATION
  Report Type: Spontaneous
  Country: US (occurrence: US)
  Receive Date: 20200214
  Receipt Date: 20200214
  Transmission Date: 20200409
  Serious: No
  Sender: FDA-Public Use
  Company Number: None

PATIENT
  Age: 51 Year
  Sex: Female
  Weight: 73.94 kg

DRUGS (1)
  1. ELURYNG [Suspect]
     Active Substance: ETHINYL ESTRADIOL\ETONOGESTREL
     Indication: CONTRACEPTION
     Dosage: ?          QUANTITY:1;OTHER FREQUENCY:USE EVERY 20 DAYS;OTHER ROUTE:INSERTED?
     Dates: start: 20200101, end: 20200207

REACTIONS (1)
  - Hypertension [None]

NARRATIVE: CASE EVENT DATE: 20200206
